FAERS Safety Report 4417532-2 (Version None)
Quarter: 2004Q2

REPORT INFORMATION
  Report Type: 
  Country: None (occurrence: None)
  Receive Date: 20040623
  Receipt Date: 20040225
  Transmission Date: 20050107
  Serious: Yes (Hospitalization)
  Sender: FDA-Public Use
  Company Number: K200400260

PATIENT
  Age: 48 Year
  Sex: Female

DRUGS (1)
  1. LEVOXYL [Suspect]
     Indication: HYPOTHYROIDISM
     Dosage: 125 MCG, QD, ORAL
     Route: 048
     Dates: end: 20010101

REACTIONS (2)
  - DYSPNOEA [None]
  - HYPERSENSITIVITY [None]
